FAERS Safety Report 6064882-2 (Version None)
Quarter: 2009Q1

REPORT INFORMATION
  Report Type: 
  Country: None (occurrence: None)
  Receive Date: 20090204
  Receipt Date: 20081218
  Transmission Date: 20090719
  Serious: Yes (Death)
  Sender: FDA-Public Use
  Company Number: US-JNJFOC-20081206197

PATIENT
  Age: 57 Year
  Sex: Male

DRUGS (9)
  1. TRAMADOL HCL [Suspect]
     Indication: SUICIDE ATTEMPT
     Route: 048
  2. ACETAMINOPHEN [Suspect]
     Route: 048
  3. ACETAMINOPHEN [Suspect]
     Indication: SUICIDE ATTEMPT
     Route: 048
  4. NAPROXEN [Suspect]
     Indication: SUICIDE ATTEMPT
     Route: 048
  5. METHADONE HCL [Suspect]
     Indication: SUICIDE ATTEMPT
     Route: 048
  6. BUPROPION HCL [Suspect]
     Indication: SUICIDE ATTEMPT
     Route: 048
  7. PROPRANOLOL [Suspect]
     Indication: SUICIDE ATTEMPT
     Route: 048
  8. GABAPENTIN [Suspect]
     Indication: SUICIDE ATTEMPT
     Route: 048
  9. LISINOPRIL [Suspect]
     Indication: SUICIDE ATTEMPT
     Route: 048

REACTIONS (1)
  - DRUG TOXICITY [None]
